FAERS Safety Report 4942713-9 (Version None)
Quarter: 2006Q1

REPORT INFORMATION
  Report Type: 
  Country: None (occurrence: None)
  Receive Date: 20060314
  Receipt Date: 20050509
  Transmission Date: 20060701
  Serious: Yes (Life-Threatening, Other)
  Sender: FDA-Public Use
  Company Number: PHHO2005US07476

PATIENT
  Age: 72 Year
  Sex: Female
  Weight: 83 kg

DRUGS (3)
  1. LOTREL [Suspect]
     Indication: HYPERTENSION
     Dosage: UNK, LEVEL 1
     Route: 048
     Dates: start: 20050422, end: 20050509
  2. COZAAR [Concomitant]
     Indication: HYPERTENSION
     Dosage: 100 UNK, QD
  3. NORVASC [Concomitant]
     Indication: HYPERTENSION
     Dosage: 2.5 UNK, QD

REACTIONS (9)
  - BUNDLE BRANCH BLOCK LEFT [None]
  - CARDIAC FAILURE CONGESTIVE [None]
  - CARDIOMEGALY [None]
  - CONCOMITANT DISEASE PROGRESSION [None]
  - COUGH [None]
  - DYSPNOEA [None]
  - DYSPNOEA PAROXYSMAL NOCTURNAL [None]
  - OEDEMA PERIPHERAL [None]
  - ORTHOPNOEA [None]
